FAERS Safety Report 7855105-X (Version None)
Quarter: 2011Q4

REPORT INFORMATION
  Report Type: 
  Country: None (occurrence: None)
  Receive Date: 20111026
  Receipt Date: 20111014
  Transmission Date: 20120403
  Serious: Yes (Life-Threatening)
  Sender: FDA-Public Use
  Company Number: GB-GILEAD-2011-0045427

PATIENT
  Age: 52 Year
  Sex: Male

DRUGS (5)
  1. NOVORAPID [Concomitant]
     Indication: TYPE 2 DIABETES MELLITUS
     Route: 058
  2. LANTUS [Concomitant]
     Indication: TYPE 2 DIABETES MELLITUS
     Route: 058
  3. TRUVADA [Suspect]
     Indication: ANTIRETROVIRAL THERAPY
     Route: 048
     Dates: end: 20111003
  4. ATAZANAVIR [Concomitant]
     Indication: ANTIRETROVIRAL THERAPY
     Route: 048
  5. RITONAVIR [Concomitant]
     Indication: ANTIRETROVIRAL THERAPY
     Route: 048

REACTIONS (2)
  - FANCONI SYNDROME ACQUIRED [None]
  - BLOOD PHOSPHORUS DECREASED [None]
